FAERS Safety Report 8600744-1 (Version None)
Quarter: 2012Q3

REPORT INFORMATION
  Report Type: 
  Country: None (occurrence: None)
  Receive Date: 20120817
  Receipt Date: 20120806
  Transmission Date: 20120928
  Serious: Yes (Hospitalization, Other)
  Sender: FDA-Public Use
  Company Number: RS-RANBAXY-2012RR-58945

PATIENT
  Age: 78 Year
  Sex: Female

DRUGS (3)
  1. AMLODIPINE [Suspect]
     Indication: PRODUCT USED FOR UNKNOWN INDICATION
     Dosage: SHORT COURSE
     Route: 065
  2. AMLODIPINE [Suspect]
     Dosage: 10 MG, SINGLE
     Route: 065
  3. SIMVASTATIN [Suspect]
     Indication: DYSLIPIDAEMIA
     Dosage: UNK UNK, SINGLE
     Route: 048

REACTIONS (3)
  - DRUG ADMINISTRATION ERROR [None]
  - THROMBOCYTOPENIA [None]
  - PRURITUS GENERALISED [None]
